FAERS Safety Report 8984671 (Version 2)
Quarter: 2013Q2

REPORT INFORMATION
  Report Type: Spontaneous
  Country: US (occurrence: US)
  Receive Date: 20121226
  Receipt Date: 20130514
  Transmission Date: 20140414
  Serious: Yes (Hospitalization)
  Sender: FDA-Public Use
  Company Number: US-ELI_LILLY_AND_COMPANY-US201212006145

PATIENT
  Age: 45 Year
  Sex: Female

DRUGS (3)
  1. HUMALOG LISPRO [Suspect]
     Indication: TYPE 1 DIABETES MELLITUS
     Dosage: UNK, PRN
  2. LANTUS [Concomitant]
     Dosage: UNK, UNKNOWN
  3. GLUCAGON [Concomitant]
     Dosage: UNK, UNKNOWN

REACTIONS (3)
  - Blood glucose increased [Unknown]
  - Malaise [Unknown]
  - Drug dose omission [Recovered/Resolved]
